FAERS Safety Report 5898496-1 (Version None)
Quarter: 2008Q3

REPORT INFORMATION
  Report Type: 
  Country: None (occurrence: None)
  Receive Date: 20080925
  Receipt Date: 20071204
  Transmission Date: 20090109
  Serious: No
  Sender: FDA-Public Use
  Company Number: A0697285A

PATIENT
  Sex: Female

DRUGS (2)
  1. WELLBUTRIN XL [Suspect]
     Indication: DEPRESSION
     Dates: start: 20071123
  2. NO CONCURRENT MEDICATION [Concomitant]

REACTIONS (2)
  - FORMICATION [None]
  - PARAESTHESIA [None]
